FAERS Safety Report 15902014 (Version 2)
Quarter: 2019Q3

REPORT INFORMATION
  Report Type: Report from Study
  Country: JP (occurrence: JP)
  Receive Date: 20190201
  Receipt Date: 20190905
  Transmission Date: 20191004
  Serious: Yes (Other)
  Sender: FDA-Public Use
  Company Number: JP-PFIZER INC-2019049460

PATIENT
  Age: 33 Year
  Sex: Female
  Weight: 41 kg

DRUGS (4)
  1. RAPALIMUS [Suspect]
     Active Substance: SIROLIMUS
     Indication: LYMPHANGIOLEIOMYOMATOSIS
     Dosage: 1 MG, 1X/DAY
     Route: 048
     Dates: start: 20171107, end: 20180424
  2. RAPALIMUS [Suspect]
     Active Substance: SIROLIMUS
     Dosage: 1 MG, 1X/DAY
     Route: 048
     Dates: start: 20181025
  3. SPIRIVA [Concomitant]
     Active Substance: TIOTROPIUM BROMIDE MONOHYDRATE
     Indication: LYMPHANGIOLEIOMYOMATOSIS
     Dosage: UNK
     Route: 055
  4. RAPALIMUS [Suspect]
     Active Substance: SIROLIMUS
     Dosage: 2 MG, 1X/DAY
     Route: 048
     Dates: start: 20180425, end: 20181024

REACTIONS (9)
  - Hepatic enzyme increased [Recovered/Resolved]
  - Dermatitis acneiform [Not Recovered/Not Resolved]
  - Nasopharyngitis [Recovered/Resolved]
  - Road traffic accident [Unknown]
  - Blood cholesterol increased [Recovered/Resolved]
  - Menstruation irregular [Not Recovered/Not Resolved]
  - Diarrhoea [Recovered/Resolved]
  - Post-traumatic neck syndrome [Unknown]
  - Stomatitis [Recovered/Resolved]

NARRATIVE: CASE EVENT DATE: 20171113
